FAERS Safety Report 23178072 (Version 1)
Quarter: 2023Q4

REPORT INFORMATION
  Report Type: Spontaneous
  Country: US (occurrence: US)
  Receive Date: 20231113
  Receipt Date: 20231113
  Transmission Date: 20240110
  Serious: No
  Sender: FDA-Public Use
  Company Number: US-MYLANLABS-2023M1113460

PATIENT
  Age: 40 Year
  Sex: Male

DRUGS (1)
  1. VIAGRA [Suspect]
     Active Substance: SILDENAFIL CITRATE
     Indication: Erectile dysfunction
     Dosage: 50 MILLIGRAM EVERY COUPLE OF DAYS
     Route: 065
     Dates: start: 202310

REACTIONS (5)
  - Penile odour [Not Recovered/Not Resolved]
  - Pruritus genital [Unknown]
  - Penile erythema [Unknown]
  - Penile discomfort [Unknown]
  - Smegma accumulation [Unknown]

NARRATIVE: CASE EVENT DATE: 20231001
